FAERS Safety Report 7007043-2 (Version None)
Quarter: 2010Q3

REPORT INFORMATION
  Report Type: 
  Country: None (occurrence: None)
  Receive Date: 20100922
  Receipt Date: 20100920
  Transmission Date: 20110219
  Serious: Yes (Hospitalization)
  Sender: FDA-Public Use
  Company Number: US-ROXANE LABORATORIES, INC.-2010-DE-04830GD

PATIENT
  Age: 28 Year
  Sex: Male

DRUGS (4)
  1. PREDNISONE [Suspect]
     Indication: HYPERTHYROIDISM
  2. METHIMAZOLE [Suspect]
     Indication: HYPERTHYROIDISM
  3. PROPRANOLOL [Concomitant]
     Indication: HYPERTHYROIDISM
  4. PROPRANOLOL [Concomitant]
     Indication: THYROTOXIC PERIODIC PARALYSIS

REACTIONS (3)
  - BLOOD GLUCOSE INCREASED [None]
  - HYPOKALAEMIA [None]
  - THYROTOXIC PERIODIC PARALYSIS [None]
